FAERS Safety Report 21356450 (Version 1)
Quarter: 2022Q3

REPORT INFORMATION
  Report Type: Spontaneous
  Country: GB (occurrence: GB)
  Receive Date: 20220920
  Receipt Date: 20220920
  Transmission Date: 20221026
  Serious: Yes (Other)
  Sender: FDA-Public Use
  Company Number: None

PATIENT
  Age: 29 Year
  Sex: Female
  Weight: 93 kg

DRUGS (1)
  1. CORTISOL [Suspect]
     Active Substance: HYDROCORTISONE
     Indication: Product used for unknown indication
     Route: 065

REACTIONS (7)
  - Swelling [Not Recovered/Not Resolved]
  - Hyperhidrosis [Recovering/Resolving]
  - Feeling cold [Recovering/Resolving]
  - Lymphadenopathy [Recovering/Resolving]
  - Lymph node pain [Recovered/Resolved with Sequelae]
  - Cold sweat [Recovered/Resolved]
  - Pyrexia [Recovered/Resolved]

NARRATIVE: CASE EVENT DATE: 20210423
